FAERS Safety Report 6722207-0 (Version None)
Quarter: 2010Q2

REPORT INFORMATION
  Report Type: 
  Country: None (occurrence: None)
  Receive Date: 20100512
  Receipt Date: 20100428
  Transmission Date: 20101027
  Serious: Yes (Other)
  Sender: FDA-Public Use
  Company Number: US-ELI_LILLY_AND_COMPANY-US201005000797

PATIENT
  Sex: Male

DRUGS (3)
  1. ZYPREXA [Suspect]
     Dosage: 20 MG, DAILY (1/D)
  2. DEPAKOTE [Concomitant]
  3. KLONOPIN [Concomitant]

REACTIONS (1)
  - HYPONATRAEMIA [None]
